FAERS Safety Report 9461887 (Version 2)
Quarter: 2013Q3

REPORT INFORMATION
  Report Type: Report from Study
  Country: IN (occurrence: IN)
  Receive Date: 20130816
  Receipt Date: 20130829
  Transmission Date: 20140515
  Serious: Yes (Death)
  Sender: FDA-Public Use
  Company Number: IN-SANOFI-AVENTIS-2013SA080778

PATIENT
  Age: 17 Year
  Sex: Male

DRUGS (1)
  1. TAXOTERE [Suspect]
     Indication: GASTRIC CANCER
     Route: 042
     Dates: start: 20130520, end: 20130618

REACTIONS (4)
  - Disease progression [Fatal]
  - Diarrhoea [Unknown]
  - Decreased appetite [Unknown]
  - Dyspepsia [Unknown]
